FAERS Safety Report 5377881-0 (Version None)
Quarter: 2007Q2

REPORT INFORMATION
  Report Type: 
  Country: None (occurrence: None)
  Receive Date: 20070629
  Receipt Date: 20070618
  Transmission Date: 20071010
  Serious: Yes (Hospitalization)
  Sender: FDA-Public Use
  Company Number: 234961K07USA

PATIENT
  Age: 51 Year
  Sex: Female
  Weight: 81.6475 kg

DRUGS (6)
  1. REBIF [Suspect]
     Indication: MULTIPLE SCLEROSIS
     Dosage: 44 MCG, 3 IN 1 WEEKS, SUBCUTANEOUS
     Route: 058
     Dates: start: 20030526
  2. SINEMET [Concomitant]
  3. SINEMET SR (SINEMET) [Concomitant]
  4. PAXIL [Concomitant]
  5. ARTANE [Concomitant]
  6. PARCOPA (SINEMET) [Concomitant]

REACTIONS (3)
  - ANXIETY [None]
  - CHOLELITHIASIS [None]
  - PANIC ATTACK [None]
